FAERS Safety Report 21390286 (Version 1)
Quarter: 2022Q3

REPORT INFORMATION
  Report Type: Spontaneous
  Country: ES (occurrence: ES)
  Receive Date: 20220929
  Receipt Date: 20220929
  Transmission Date: 20221027
  Serious: Yes (Life-Threatening)
  Sender: FDA-Public Use
  Company Number: ES-AEMPS-1059409

PATIENT
  Age: 69 Year
  Sex: Male
  Weight: 6 kg

DRUGS (3)
  1. OMEPRAZOLE [Suspect]
     Active Substance: OMEPRAZOLE
     Indication: Product used for unknown indication
     Dosage: 20 MILLIGRAM, IN TOTAL
     Route: 048
     Dates: start: 20211116, end: 20211116
  2. AMOXICILLIN [Suspect]
     Active Substance: AMOXICILLIN
     Indication: Infection
     Dosage: 750 MILLIGRAM, TID
     Route: 065
     Dates: start: 20211116, end: 20211116
  3. METAMIZOLE [Suspect]
     Active Substance: METAMIZOLE
     Indication: Analgesic therapy
     Dosage: UNK
     Route: 048
     Dates: start: 20211116, end: 20211116

REACTIONS (8)
  - Eyelid oedema [Recovered/Resolved]
  - Respiratory distress [Recovered/Resolved]
  - Rash [Recovered/Resolved]
  - Lip oedema [Recovered/Resolved]
  - Anaphylactic shock [Recovered/Resolved]
  - Abdominal pain [Recovered/Resolved]
  - Wheezing [Recovered/Resolved]
  - Pruritus [Recovered/Resolved]

NARRATIVE: CASE EVENT DATE: 20211116
